FAERS Safety Report 15280340 (Version 4)
Quarter: 2019Q4

REPORT INFORMATION
  Report Type: Spontaneous
  Country: CA (occurrence: CA)
  Receive Date: 20180815
  Receipt Date: 20191108
  Transmission Date: 20200122
  Serious: Yes (Death, Hospitalization, Other)
  Sender: FDA-Public Use
  Company Number: CA-PFIZER INC-2018326567

PATIENT
  Age: 61 Year
  Sex: Female
  Weight: 100 kg

DRUGS (21)
  1. FLOVENT HFA [Suspect]
     Active Substance: FLUTICASONE PROPIONATE
     Indication: PYODERMA GANGRENOSUM
     Dosage: 250 UG, DAILY (INHALER SPRAYED TO ULCER)
     Route: 061
  2. COLCHICINE. [Suspect]
     Active Substance: COLCHICINE
     Indication: PYODERMA GANGRENOSUM
     Dosage: 0.6 MG, 2X/DAY
     Route: 048
  3. HUMAN IMMUNOGLOBULIN (IMMUNOGLOBULIN HUMAN NORMAL) [Suspect]
     Active Substance: HUMAN IMMUNOGLOBULIN G
     Indication: PYODERMA GANGRENOSUM
     Dosage: UNK, DAILY (1 G/KG, DAILY, TWO DOSES)
     Route: 042
  4. INTRASITE GEL [Concomitant]
     Indication: WOUND TREATMENT
     Dosage: UNK UNK, DAILY
  5. HYDROCORTISONE. [Suspect]
     Active Substance: HYDROCORTISONE
     Indication: PYODERMA GANGRENOSUM
     Dosage: 50 MG, 4X/DAY, (HIGH-DOSE)
     Route: 042
  6. AZATHIOPRINE. [Suspect]
     Active Substance: AZATHIOPRINE
     Indication: PYODERMA GANGRENOSUM
     Dosage: 100 MG, 2X/DAY
     Route: 048
  7. FLUTICASONE. [Suspect]
     Active Substance: FLUTICASONE
     Indication: PYODERMA GANGRENOSUM
     Dosage: 250 UG, UNK
     Route: 061
  8. MINIMS PREDNISOLONE SODIUM PHOSPHATE [Suspect]
     Active Substance: PREDNISOLONE SODIUM PHOSPHATE
     Indication: PYODERMA GANGRENOSUM
     Dosage: UNK,DROPS OPHTHALMIC
     Route: 048
  9. CARBOXYMETHYLCELLULOSE [Concomitant]
     Active Substance: CARBOXYMETHYLCELLULOSE
     Indication: WOUND
     Dosage: UNK
     Route: 061
  10. AZATHIOPRINE. [Suspect]
     Active Substance: AZATHIOPRINE
     Indication: MYASTHENIA GRAVIS
     Dosage: 150 MG, 2X/DAY
     Route: 048
  11. CICLOSPORIN [Suspect]
     Active Substance: CYCLOSPORINE
     Indication: PYODERMA GANGRENOSUM
     Dosage: 400 MG, DAILY
     Route: 042
  12. MINOCYCLINE [Suspect]
     Active Substance: MINOCYCLINE HYDROCHLORIDE
     Indication: ANTIINFLAMMATORY THERAPY
  13. PREDNISOLONE. [Suspect]
     Active Substance: PREDNISOLONE
     Indication: PYODERMA GANGRENOSUM
     Dosage: 70 MG, DAILY
     Route: 048
  14. GAMMAGARD [Suspect]
     Active Substance: HUMAN IMMUNOGLOBULIN G
     Indication: PYODERMA GANGRENOSUM
     Dosage: UNK
     Route: 042
  15. PREDNISONE. [Suspect]
     Active Substance: PREDNISONE
     Indication: PYODERMA GANGRENOSUM
     Dosage: UNK, DAILY (50 TO 70 MG)
     Route: 048
  16. MORPHINE [Concomitant]
     Active Substance: MORPHINE
     Indication: WOUND TREATMENT
     Dosage: UNK
     Route: 061
  17. ARESTIN [Suspect]
     Active Substance: MINOCYCLINE HYDROCHLORIDE
     Indication: PYODERMA GANGRENOSUM
     Dosage: 100 MG, 2X/DAY
     Route: 048
  18. MINOCYCLINE [Suspect]
     Active Substance: MINOCYCLINE HYDROCHLORIDE
     Indication: PYODERMA GANGRENOSUM
     Dosage: 100 MG, 2X/DAY
     Route: 048
  19. HUMAN IMMUNOGLOBULIN (IMMUNOGLOBULIN HUMAN NORMAL) [Suspect]
     Active Substance: HUMAN IMMUNOGLOBULIN G
     Indication: PYODERMA GANGRENOSUM
     Dosage: 1 G/KG/DAY; RECEIVED 2 DOSES
     Route: 042
  20. INTRASITE [CARMELLOSE] [Concomitant]
     Indication: WOUND
     Route: 061
  21. SEASORB AG [Concomitant]
     Indication: WOUND TREATMENT
     Dosage: UNK

REACTIONS (10)
  - Septic shock [Fatal]
  - Treatment failure [Fatal]
  - Urinary tract infection [Fatal]
  - Off label use [Fatal]
  - Pancytopenia [Fatal]
  - Disseminated intravascular coagulation [Fatal]
  - Pulmonary mass [Fatal]
  - Product use in unapproved indication [Fatal]
  - Enterococcal sepsis [Fatal]
  - Hepatic failure [Fatal]
